FAERS Safety Report 24213429 (Version 2)
Quarter: 2024Q3

REPORT INFORMATION
  Report Type: Spontaneous
  Country: US (occurrence: US)
  Receive Date: 20240815
  Receipt Date: 20240904
  Transmission Date: 20241017
  Serious: No
  Sender: ELI LILLY AND CO
  Company Number: US-ELI_LILLY_AND_COMPANY-US202408007351

PATIENT
  Sex: Female

DRUGS (1)
  1. TIRZEPATIDE [Suspect]
     Active Substance: TIRZEPATIDE
     Indication: Weight control
     Dosage: 34 MG, WEEKLY (1/W)
     Route: 065

REACTIONS (5)
  - Alcohol abuse [Unknown]
  - Mood altered [Unknown]
  - Product tampering [Unknown]
  - Personality change [Unknown]
  - Intentional product misuse [Unknown]
